FAERS Safety Report 8966906 (Version 2)
Quarter: 2012Q4

REPORT INFORMATION
  Report Type: Report from Study
  Country: DE (occurrence: DE)
  Receive Date: 20121214
  Receipt Date: 20121217
  Transmission Date: 20130627
  Serious: Yes (Hospitalization)
  Sender: FDA-Public Use
  Company Number: DE-ABBOTT-12P-062-1019776-00

PATIENT
  Sex: Female
  Weight: 49 kg

DRUGS (2)
  1. HUMIRA [Suspect]
     Indication: CROHN^S DISEASE
     Route: 058
     Dates: start: 20110107
  2. L-THYROXINE [Concomitant]
     Indication: HYPOTHYROIDISM
     Dosage: 88 mg daily

REACTIONS (5)
  - Proctitis ulcerative [Recovered/Resolved]
  - Anal fistula [Recovered/Resolved]
  - Flatulence [Unknown]
  - Anaemia [Unknown]
  - Back pain [Unknown]
